FAERS Safety Report 24676561 (Version 1)
Quarter: 2024Q4

REPORT INFORMATION
  Report Type: Spontaneous
  Country: BR (occurrence: BR)
  Receive Date: 20241128
  Receipt Date: 20241128
  Transmission Date: 20250115
  Serious: Yes (Other)
  Sender: BAUSCH AND LOMB
  Company Number: BR-LEO Pharma-375363

PATIENT
  Sex: Male

DRUGS (1)
  1. BRODALUMAB [Suspect]
     Active Substance: BRODALUMAB
     Indication: Product used for unknown indication
     Route: 065

REACTIONS (3)
  - Schizophrenia [Unknown]
  - Anxiety [Unknown]
  - Panic attack [Unknown]
